FAERS Safety Report 16952177 (Version 4)
Quarter: 2021Q2

REPORT INFORMATION
  Report Type: Spontaneous
  Country: CA (occurrence: CA)
  Receive Date: 20191023
  Receipt Date: 20210511
  Transmission Date: 20210716
  Serious: Yes (Other)
  Sender: FDA-Public Use
  Company Number: CA-PFIZER INC-2019400706

PATIENT
  Age: 53 Year
  Sex: Female
  Weight: 83.45 kg

DRUGS (12)
  1. XELJANZ [Suspect]
     Active Substance: TOFACITINIB CITRATE
     Dosage: 10 MG, 1X/DAY
     Route: 048
     Dates: end: 20201204
  2. XELJANZ [Suspect]
     Active Substance: TOFACITINIB CITRATE
     Dosage: 5MG,2X/DAY
     Route: 048
     Dates: start: 20210301
  3. OLESTYR [Concomitant]
     Active Substance: CHOLESTYRAMINE
     Dosage: UNK
  4. XELJANZ [Suspect]
     Active Substance: TOFACITINIB CITRATE
     Dosage: 10 MG, 1X/DAY
     Route: 048
     Dates: start: 201910, end: 2019
  5. SULFASALAZINE. [Suspect]
     Active Substance: SULFASALAZINE
     Indication: ARTHRITIS
     Dosage: 500 MG, 1X/DAY
  6. METHOTREXATE. [Concomitant]
     Active Substance: METHOTREXATE
     Dosage: UNK (6 PILLS ON SUNDAY)
     Route: 048
     Dates: start: 202009
  7. XELJANZ [Suspect]
     Active Substance: TOFACITINIB CITRATE
     Dosage: 10 MG, 1X/DAY
     Route: 048
     Dates: start: 201909, end: 2019
  8. XELJANZ [Suspect]
     Active Substance: TOFACITINIB CITRATE
     Dosage: 10MG,1X/DAY
     Route: 048
     Dates: start: 20201204, end: 20210301
  9. XELJANZ [Suspect]
     Active Substance: TOFACITINIB CITRATE
     Indication: COLITIS ULCERATIVE
     Dosage: 10 MG, 2X/DAY
     Route: 048
     Dates: start: 20190910, end: 20190913
  10. XELJANZ [Suspect]
     Active Substance: TOFACITINIB CITRATE
     Dosage: 5 MG, 2X/DAY
     Route: 048
     Dates: start: 20190913, end: 20190917
  11. XELJANZ [Suspect]
     Active Substance: TOFACITINIB CITRATE
     Dosage: 10 MG, 2X/DAY
     Route: 048
     Dates: start: 20190918, end: 201909
  12. FOLIC ACID. [Concomitant]
     Active Substance: FOLIC ACID
     Dosage: UNK

REACTIONS (12)
  - Abdominal pain upper [Unknown]
  - Rheumatoid arthritis [Unknown]
  - Lethargy [Unknown]
  - Pain [Unknown]
  - Abdominal distension [Unknown]
  - Fatigue [Unknown]
  - Decreased appetite [Unknown]
  - Abdominal discomfort [Unknown]
  - Intentional product misuse [Unknown]
  - Nausea [Unknown]
  - Malaise [Unknown]
  - Condition aggravated [Unknown]

NARRATIVE: CASE EVENT DATE: 201909
